FAERS Safety Report 24782362 (Version 1)
Quarter: 2024Q4

REPORT INFORMATION
  Report Type: Spontaneous
  Country: US (occurrence: US)
  Receive Date: 20241227
  Receipt Date: 20241227
  Transmission Date: 20250115
  Serious: Yes (Other)
  Sender: BAYER HEALTHCARE PHARMACEUTICALS INC.
  Company Number: US-BAYER-2024A181859

PATIENT
  Age: 38 Year
  Sex: Male

DRUGS (3)
  1. MOXIFLOXACIN [Suspect]
     Active Substance: MOXIFLOXACIN
     Indication: Tuberculosis
  2. AMIKACIN [Suspect]
     Active Substance: AMIKACIN
     Indication: Tuberculosis
  3. ETHAMBUTOL [Suspect]
     Active Substance: ETHAMBUTOL HYDROCHLORIDE
     Indication: Tuberculosis

REACTIONS (2)
  - Hepatotoxicity [None]
  - Product use in unapproved indication [None]
